FAERS Safety Report 6359578-3 (Version None)
Quarter: 2009Q3

REPORT INFORMATION
  Report Type: 
  Country: None (occurrence: None)
  Receive Date: 20090917
  Receipt Date: 20090910
  Transmission Date: 20100115
  Serious: Yes (Other)
  Sender: FDA-Public Use
  Company Number: DK-JNJFOC-20090903345

PATIENT
  Age: 65 Year
  Sex: Female

DRUGS (14)
  1. RISPERIDONE [Suspect]
     Route: 048
     Dates: start: 20070701, end: 20090301
  2. RISPERIDONE [Suspect]
     Indication: PSYCHOTIC DISORDER
     Route: 048
     Dates: start: 20070701, end: 20090301
  3. STESOLID [Concomitant]
     Indication: RESTLESSNESS
     Route: 048
  4. VALPROIC ACID [Concomitant]
     Indication: AFFECTIVE DISORDER
     Route: 048
  5. RIVOTRIL [Concomitant]
     Indication: RESTLESSNESS
     Route: 048
  6. AMITRIPTYLINE HCL [Concomitant]
     Indication: SALIVARY HYPERSECRETION
     Route: 048
  7. AMARYL [Concomitant]
     Indication: DIABETES MELLITUS
     Route: 048
  8. METFORMIN HCL [Concomitant]
     Indication: DIABETES MELLITUS
     Route: 048
  9. IBUMETIN [Concomitant]
     Indication: ARTHRALGIA
     Route: 048
  10. GLUCOSAMINE [Concomitant]
     Indication: BACK PAIN
     Route: 048
  11. SALT [Concomitant]
     Indication: DYSPEPSIA
     Route: 048
  12. SALBUTAMOL [Concomitant]
     Indication: ASTHMA
     Route: 055
  13. PARACETAMOL [Concomitant]
     Indication: PAIN
     Route: 048
  14. ALFUZOSIN HCL [Concomitant]
     Indication: DYSURIA
     Route: 048

REACTIONS (2)
  - MUSCLE SPASMS [None]
  - MYOCARDIAL ISCHAEMIA [None]
